FAERS Safety Report 4446955-0 (Version None)
Quarter: 2004Q3

REPORT INFORMATION
  Report Type: 
  Country: None (occurrence: None)
  Receive Date: 20040813
  Receipt Date: 20040623
  Transmission Date: 20050211
  Serious: No
  Sender: FDA-Public Use
  Company Number: S04-USA-03728-01

PATIENT
  Age: 76 Year
  Sex: Female

DRUGS (17)
  1. NAMENDA [Suspect]
     Indication: AMNESIA
     Dosage: 5 MG QD PO
     Route: 048
     Dates: start: 20040601, end: 20040601
  2. NAMENDA [Suspect]
     Indication: AMNESIA
     Dosage: 10 MG QD PO
     Route: 048
     Dates: start: 20040601, end: 20040601
  3. NAMENDA [Suspect]
     Indication: AMNESIA
     Dosage: 15 MG QD PO
     Route: 048
     Dates: start: 20040601, end: 20040601
  4. NAMENDA [Suspect]
     Indication: AMNESIA
     Dosage: 20 MG QD PO
     Route: 048
     Dates: start: 20040601
  5. NORVASC [Concomitant]
  6. ZESTRIL [Concomitant]
  7. LIPITOR [Concomitant]
  8. QUININE SULFATE [Concomitant]
  9. HUMBID (GUAIFENESIN) [Concomitant]
  10. ALLEGRA [Concomitant]
  11. ADVAIR DISKUS 100/50 [Concomitant]
  12. COMBIVENT [Concomitant]
  13. NASONEX [Concomitant]
  14. PREVACID [Concomitant]
  15. SINGULAIR [Concomitant]
  16. KLONOPIN [Concomitant]
  17. ATIVAN [Concomitant]

REACTIONS (1)
  - DIZZINESS [None]
